FAERS Safety Report 15891172 (Version 1)
Quarter: 2019Q1

REPORT INFORMATION
  Report Type: Spontaneous
  Country: FR (occurrence: FR)
  Receive Date: 20190130
  Receipt Date: 20190130
  Transmission Date: 20190417
  Serious: Yes (Hospitalization)
  Sender: FDA-Public Use
  Company Number: FR-MYLANLABS-2019M1007921

PATIENT
  Age: 68 Year
  Sex: Male
  Weight: 68 kg

DRUGS (3)
  1. ENDOXAN                            /00021101/ [Suspect]
     Active Substance: CYCLOPHOSPHAMIDE
     Indication: MONOCLONAL GAMMOPATHY
     Dosage: 500 MILLIGRAM
     Route: 048
     Dates: start: 20180308
  2. DEXAMETHASONE. [Suspect]
     Active Substance: DEXAMETHASONE
     Indication: MONOCLONAL GAMMOPATHY
     Dosage: 40 MILLIGRAM, QW
     Route: 048
     Dates: start: 20180308
  3. VELCADE [Suspect]
     Active Substance: BORTEZOMIB
     Indication: MONOCLONAL GAMMOPATHY
     Dosage: 1.3 MILLIGRAM/SQ. METER
     Route: 058
     Dates: start: 20180308

REACTIONS (1)
  - Hypothyroidism [Not Recovered/Not Resolved]

NARRATIVE: CASE EVENT DATE: 20180706
